FAERS Safety Report 20710781 (Version 1)
Quarter: 2022Q2

REPORT INFORMATION
  Report Type: Other
  Country: CN (occurrence: None)
  Receive Date: 20220414
  Receipt Date: 20220414
  Transmission Date: 20220721
  Serious: Yes (Death)
  Sender: FDA-Public Use
  Company Number: CN-ROCHE-3071789

PATIENT
  Age: 68 Year
  Sex: Female

DRUGS (1)
  1. KADCYLA [Suspect]
     Active Substance: ADO-TRASTUZUMAB EMTANSINE
     Indication: HER2 positive breast cancer
     Dosage: INTRAVENOUS INFUSION, 100MG/160MG
     Route: 042
     Dates: start: 20210519

REACTIONS (1)
  - Death [Fatal]
